FAERS Safety Report 8763646 (Version 1)
Quarter: 2012Q4

REPORT INFORMATION
  Report Type: 
  Country: DE (occurrence: DE)
  Receive Date: 20120828
  Receipt Date: 20120828
  Transmission Date: 20130627
  Serious: Yes (Hospitalization)
  Sender: FDA-Public Use
  Company Number: DE-VERTEX PHARMACEUTICAL INC.-000000000000001167

PATIENT
  Age: 29 Year
  Sex: Male
  Weight: 65 kg

DRUGS (5)
  1. TELAPREVIR [Suspect]
     Indication: CHRONIC HEPATITIS
     Dosage: 750 mg, tid
     Route: 048
     Dates: start: 20120611, end: 20120622
  2. ISENTRESS [Suspect]
     Indication: HIV INFECTION
     Dosage: 400 mg, bid
     Route: 065
     Dates: start: 20120611, end: 20120622
  3. PEGASYS [Concomitant]
     Dosage: UNK
     Route: 065
  4. COPEGUS [Concomitant]
     Dosage: 1000 mg, UNK
     Route: 048
  5. TRUVADA [Concomitant]
     Dosage: UNK
     Route: 065

REACTIONS (3)
  - Ataxia [Recovered/Resolved]
  - Convulsion [Recovered/Resolved]
  - Pain [Recovered/Resolved]
